FAERS Safety Report 17508126 (Version 1)
Quarter: 2020Q1

REPORT INFORMATION
  Report Type: Spontaneous
  Country: AU (occurrence: AU)
  Receive Date: 20200306
  Receipt Date: 20200306
  Transmission Date: 20200409
  Serious: Yes (Hospitalization, Other)
  Sender: FDA-Public Use
  Company Number: AU-ACTELION-A-CH2019-193711

PATIENT
  Sex: Female
  Weight: 83 kg

DRUGS (23)
  1. WARFARIN [Concomitant]
     Active Substance: WARFARIN
     Dosage: 5 MG, QD
  2. WARFARIN [Concomitant]
     Active Substance: WARFARIN
     Dosage: 3 MG, QD
  3. BETAMETHASONE DIPROPIONATE. [Concomitant]
     Active Substance: BETAMETHASONE DIPROPIONATE
     Dosage: UNK, BID
     Route: 003
  4. URSODEOXYCHOLIC ACID [Concomitant]
     Active Substance: URSODIOL
     Indication: TOTAL BILE ACIDS INCREASED
  5. FERRO-GRADUMET [Concomitant]
     Active Substance: FERROUS SULFATE
     Indication: MINERAL SUPPLEMENTATION
     Dosage: 325 UNK
  6. FEBRIDOL [Concomitant]
     Indication: PAIN
     Dosage: 1 G, QID
  7. ONDANSETRON [Concomitant]
     Active Substance: ONDANSETRON
     Dosage: 4 MG, BID
  8. ESCITALOPRAM [Concomitant]
     Active Substance: ESCITALOPRAM OXALATE
     Dosage: 10 MG, OD
     Dates: start: 201902
  9. PALEXIA [Concomitant]
     Active Substance: TAPENTADOL HYDROCHLORIDE
     Dosage: 100 MG, BID
  10. ENOXAPARIN [Concomitant]
     Active Substance: ENOXAPARIN
     Indication: PROPHYLAXIS
  11. HYDROCORTISONE. [Concomitant]
     Active Substance: HYDROCORTISONE
     Indication: DERMATITIS
  12. MAGNESIUM ASPARTATE [Concomitant]
     Active Substance: MAGNESIUM ASPARTATE
     Indication: MINERAL SUPPLEMENTATION
  13. VELETRI [Suspect]
     Active Substance: EPOPROSTENOL
     Indication: PULMONARY ARTERIAL HYPERTENSION
     Dosage: UNK
     Route: 042
  14. SILDENAFIL. [Suspect]
     Active Substance: SILDENAFIL
     Dosage: 50 MG, TID
     Route: 048
  15. OPSUMIT [Suspect]
     Active Substance: MACITENTAN
     Indication: PULMONARY ARTERIAL HYPERTENSION
     Dosage: 10 MG, QD
     Route: 048
     Dates: start: 20161020, end: 20190704
  16. VELETRI [Suspect]
     Active Substance: EPOPROSTENOL
     Dosage: 3.3ML/H
     Route: 042
  17. SORBOLENE [Concomitant]
     Route: 003
  18. FRUSEMIDE [Concomitant]
     Active Substance: FUROSEMIDE
     Dosage: 40 MG, OD
  19. ADVANTAN [Concomitant]
     Active Substance: METHYLPREDNISOLONE ACEPONATE
     Route: 003
  20. OXYCODONE [Concomitant]
     Active Substance: OXYCODONE
     Indication: PAIN
     Dosage: 5 MG, BID
  21. IBUPROFEN. [Suspect]
     Active Substance: IBUPROFEN
     Indication: PRODUCT USED FOR UNKNOWN INDICATION
     Route: 048
  22. SILDENAFIL. [Suspect]
     Active Substance: SILDENAFIL
     Indication: PULMONARY ARTERIAL HYPERTENSION
     Dosage: 25 MG, TID
     Route: 048
     Dates: start: 20161020
  23. SPIRONOLACTONE. [Concomitant]
     Active Substance: SPIRONOLACTONE
     Dosage: 12.5 MG, OD

REACTIONS (17)
  - Upper respiratory tract infection [Unknown]
  - Hypertension [Unknown]
  - Caesarean section [Unknown]
  - Right ventricular dilatation [Unknown]
  - Exposure during pregnancy [Unknown]
  - Blood bilirubin increased [Unknown]
  - Tricuspid valve incompetence [Unknown]
  - Total bile acids increased [Unknown]
  - Right ventricular failure [Unknown]
  - Systolic dysfunction [Unknown]
  - Abdominal pain [Unknown]
  - Escherichia infection [Unknown]
  - Right atrial dilatation [Unknown]
  - Normal newborn [Unknown]
  - Female sterilisation [Unknown]
  - Endometritis [Unknown]
  - Hepatic function abnormal [Unknown]
